FAERS Safety Report 4542429-7 (Version None)
Quarter: 2004Q4

REPORT INFORMATION
  Report Type: 
  Country: None (occurrence: None)
  Receive Date: 20041230
  Receipt Date: 20041221
  Transmission Date: 20050328
  Serious: Yes (Hospitalization)
  Sender: FDA-Public Use
  Company Number: FR-ABBOTT-04P-056-0284340-00

PATIENT
  Age: 77 Year
  Sex: Female

DRUGS (18)
  1. DEPAKENE [Suspect]
     Indication: DRUG USE FOR UNKNOWN INDICATION
     Route: 048
     Dates: start: 20041014, end: 20041114
  2. DEPAKENE [Suspect]
     Route: 048
     Dates: start: 20041115, end: 20041115
  3. DEPAKENE [Suspect]
     Route: 048
     Dates: start: 20041116
  4. AMIODARONE HYDROCHLORIDE [Suspect]
     Indication: ATRIAL FIBRILLATION
     Route: 048
     Dates: start: 20041109, end: 20041109
  5. AMIODARONE HYDROCHLORIDE [Suspect]
     Route: 048
     Dates: start: 20041110, end: 20041110
  6. AMIODARONE HYDROCHLORIDE [Suspect]
     Route: 048
     Dates: start: 20041111, end: 20041111
  7. AMIODARONE HYDROCHLORIDE [Suspect]
     Route: 048
     Dates: start: 20041112
  8. ACETAMINOPHEN [Suspect]
     Indication: DRUG USE FOR UNKNOWN INDICATION
     Route: 048
     Dates: start: 20041010
  9. PAROXETINE HYDROCHLORIDE [Suspect]
     Indication: DRUG USE FOR UNKNOWN INDICATION
     Route: 048
     Dates: start: 20041018
  10. OMEPRAZOLE [Suspect]
     Indication: DRUG USE FOR UNKNOWN INDICATION
     Route: 048
     Dates: start: 20041018
  11. BUFLOMEDIL HYDROCHLORIDE [Suspect]
     Indication: DRUG USE FOR UNKNOWN INDICATION
     Route: 048
     Dates: start: 20041018
  12. BUFLOMEDIL HYDROCHLORIDE [Suspect]
     Route: 048
     Dates: start: 20041010
  13. BUFLOMEDIL HYDROCHLORIDE [Suspect]
     Route: 048
     Dates: start: 20041018
  14. BUFLOMEDIL HYDROCHLORIDE [Suspect]
     Route: 048
     Dates: start: 20041018
  15. BUFLOMEDIL HYDROCHLORIDE [Suspect]
     Route: 048
     Dates: start: 20041018
  16. CLOPIDOGREL BISULFATE [Concomitant]
     Indication: DRUG USE FOR UNKNOWN INDICATION
     Route: 048
  17. QUINAPRIL HCL [Concomitant]
     Indication: DRUG USE FOR UNKNOWN INDICATION
     Route: 048
  18. LACTULOSE [Concomitant]
     Indication: DRUG USE FOR UNKNOWN INDICATION
     Route: 048

REACTIONS (3)
  - DRUG LEVEL DECREASED [None]
  - EXTRAPYRAMIDAL DISORDER [None]
  - TREMOR [None]
